FAERS Safety Report 4528575-2 (Version None)
Quarter: 2004Q4

REPORT INFORMATION
  Report Type: 
  Country: None (occurrence: None)
  Receive Date: 20041216
  Receipt Date: 20041129
  Transmission Date: 20050328
  Serious: Yes (Hospitalization, Other)
  Sender: FDA-Public Use
  Company Number: PHNU2004DE04013

PATIENT
  Age: 54 Year
  Sex: Female

DRUGS (4)
  1. TRILEPTAL [Suspect]
     Indication: BIPOLAR DISORDER
     Dosage: 1500 MG/D
     Route: 048
  2. RISPERDAL [Concomitant]
     Dosage: 37.5 MG, BIW
  3. DALMADORM [Concomitant]
     Dosage: 0.5 DF/D
  4. TAVOR [Concomitant]

REACTIONS (2)
  - HYPONATRAEMIA [None]
  - MANIA [None]
